FAERS Safety Report 4830566-9 (Version None)
Quarter: 2005Q4

REPORT INFORMATION
  Report Type: 
  Country: None (occurrence: None)
  Receive Date: 20051115
  Receipt Date: 20051110
  Transmission Date: 20060501
  Serious: Yes (Hospitalization, Other)
  Sender: FDA-Public Use
  Company Number: 2005040616

PATIENT
  Age: 68 Year
  Sex: Female
  Weight: 88 kg

DRUGS (13)
  1. ATORVASTATIN CALCIUM [Suspect]
     Indication: HYPERLIPIDAEMIA
     Dosage: 20 MG (20 MG, 1 IN 1 D), ORAL
     Route: 048
     Dates: start: 20041101, end: 20041101
  2. AMLODIPINE [Suspect]
     Indication: HYPERTENSION
     Dosage: 5 MG (5 MG, 1 IN 1 D), ORAL
     Route: 048
     Dates: start: 20041101, end: 20041101
  3. PANTOPRAZOLE SODIUM [Suspect]
     Indication: GASTRITIS
     Dosage: 40 MG (20 MG, 2 IN 1 D), ORAL
     Route: 048
     Dates: start: 20041101, end: 20041101
  4. CLOPIDOGREL BISULFATE [Suspect]
     Indication: ILL-DEFINED DISORDER
     Dosage: 75 MG (75 MG, 1 IN 1 D), ORAL
     Route: 048
     Dates: start: 20041101
  5. SIMVASTATIN [Suspect]
     Indication: HYPERLIPIDAEMIA
     Dosage: ORAL
     Route: 048
     Dates: end: 20041101
  6. ACETYLSALICYLIC ACID SRT [Concomitant]
  7. LEVOTHYROXINE SODIUM [Concomitant]
  8. ENALAPRIL MALEATE [Concomitant]
  9. HYDROCHLOROTHIAZIDE [Concomitant]
  10. METOPROLOL TARTRATE [Concomitant]
  11. BERLINSULIN H (INSULIN, INSULIN HUMAN INJECTION, ISOPHANE) [Concomitant]
  12. INSULIN [Concomitant]
  13. VASERETIC [Concomitant]

REACTIONS (13)
  - ALPHA 1 GLOBULIN INCREASED [None]
  - ALPHA 2 GLOBULIN INCREASED [None]
  - ANTIMITOCHONDRIAL ANTIBODY POSITIVE [None]
  - ANTINUCLEAR ANTIBODY INCREASED [None]
  - BETA GLOBULIN INCREASED [None]
  - BLOOD ALBUMIN DECREASED [None]
  - BLOOD GLUCOSE FLUCTUATION [None]
  - C-REACTIVE PROTEIN INCREASED [None]
  - DNA ANTIBODY POSITIVE [None]
  - FATIGUE [None]
  - HEPATITIS TOXIC [None]
  - HEPATOMEGALY [None]
  - RED BLOOD CELL SEDIMENTATION RATE INCREASED [None]
